FAERS Safety Report 6394022-1 (Version None)
Quarter: 2009Q4

REPORT INFORMATION
  Report Type: 
  Country: None (occurrence: None)
  Receive Date: 20091008
  Receipt Date: 20090925
  Transmission Date: 20100525
  Serious: Yes (Hospitalization)
  Sender: FDA-Public Use
  Company Number: PHHY2009CA29910

PATIENT
  Sex: Male

DRUGS (1)
  1. EXJADE [Suspect]
     Indication: MYELODYSPLASTIC SYNDROME
     Dosage: 2500 MG, QD
     Route: 048
     Dates: start: 20090424, end: 20090714

REACTIONS (6)
  - ABDOMINAL PAIN UPPER [None]
  - ESCHERICHIA INFECTION [None]
  - FATIGUE [None]
  - HEPATOMEGALY [None]
  - LIVER ABSCESS [None]
  - PYREXIA [None]
